FAERS Safety Report 4562425-3 (Version None)
Quarter: 2005Q1

REPORT INFORMATION
  Report Type: 
  Country: None (occurrence: None)
  Receive Date: 20050127
  Receipt Date: 20040624
  Transmission Date: 20050727
  Serious: Yes (Hospitalization, Other)
  Sender: FDA-Public Use
  Company Number: JP-NOVOPROD-237573

PATIENT
  Age: 69 Year
  Sex: Female
  Weight: 50 kg

DRUGS (10)
  1. INNOLET 30R CHU [Suspect]
     Indication: DIABETES MELLITUS
     Dosage: 6-8IU
     Route: 058
     Dates: start: 20040513, end: 20040524
  2. HUMULIN [Concomitant]
     Dosage: 10 IU, UNK
     Route: 058
     Dates: start: 20040411, end: 20040512
  3. UBRETID [Concomitant]
     Indication: CEREBRAL INFARCTION
     Dosage: 10 MG, QD
     Route: 048
     Dates: start: 20040510, end: 20040517
  4. FOY [Concomitant]
     Indication: DISSEMINATED INTRAVASCULAR COAGULATION
     Dosage: 2000 MG, QD
     Route: 042
     Dates: start: 20040413, end: 20040422
  5. HUMACART-N [Concomitant]
     Indication: DIABETES MELLITUS NON-INSULIN-DEPENDENT
     Dosage: 8 IU, QD
     Dates: start: 20040525, end: 20040527
  6. MEROPEN [Concomitant]
     Indication: DISSEMINATED INTRAVASCULAR COAGULATION
     Dosage: 2 G, QD
     Route: 042
     Dates: start: 20040412, end: 20040505
  7. GASTER [Concomitant]
     Indication: GASTROINTESTINAL DISORDER
     Dosage: 40 MG, QD
     Route: 042
     Dates: start: 20040413, end: 20040505
  8. ASPIRIN [Concomitant]
     Indication: CEREBRAL INFARCTION
     Dosage: 300 MG, QD
     Route: 048
     Dates: start: 20040507
  9. CEROCRAL [Concomitant]
     Indication: CEREBRAL INFARCTION
     Dosage: 60 MG, QD
     Route: 048
     Dates: start: 20040507
  10. MAGNESIUM OXIDE [Concomitant]
     Indication: GASTROINTESTINAL DISORDER
     Dosage: 1 G, QD
     Route: 048
     Dates: start: 20040507

REACTIONS (1)
  - EOSINOPHIL COUNT INCREASED [None]
